FAERS Safety Report 18054583 (Version 3)
Quarter: 2020Q3

REPORT INFORMATION
  Report Type: Spontaneous
  Country: CA (occurrence: CA)
  Receive Date: 20200722
  Receipt Date: 20200909
  Transmission Date: 20201103
  Serious: Yes (Other)
  Sender: FDA-Public Use
  Company Number: CA-PFIZER INC-2020278589

PATIENT
  Age: 52 Year
  Sex: Female

DRUGS (10)
  1. IBRANCE [Suspect]
     Active Substance: PALBOCICLIB
     Dosage: 100 MG, CYCLIC (ONCE DAILY FOR 21 DAYS OUT OF A 28 DAY CYCLE)
     Route: 048
  2. XGEVA [Concomitant]
     Active Substance: DENOSUMAB
     Dosage: UNK, QM (MONTHLY)
  3. VITAMIN D3 [Concomitant]
     Active Substance: CHOLECALCIFEROL
     Dosage: 10000 IU, DAILY
  4. IBRANCE [Suspect]
     Active Substance: PALBOCICLIB
     Indication: BREAST CANCER METASTATIC
     Dosage: 75 MG, CYCLIC (ONCE DAILY FOR 21 DAYS AND 7 DAYS OFF)
     Dates: start: 20200714
  5. FASLODEX [Concomitant]
     Active Substance: FULVESTRANT
     Dosage: 500 MG, MONTHLY
     Route: 030
     Dates: start: 2020
  6. FASLODEX [Concomitant]
     Active Substance: FULVESTRANT
     Dosage: UNK, MONTHLY
  7. CANNABIS [Concomitant]
     Active Substance: CANNABIS SATIVA SUBSP. INDICA TOP
     Dosage: UNK
  8. METOCLOPRAMIDE. [Concomitant]
     Active Substance: METOCLOPRAMIDE
     Dosage: 10 MG EVERY 4?6 HOURS AS NEEDED
     Route: 048
     Dates: start: 20200811
  9. IBRANCE [Suspect]
     Active Substance: PALBOCICLIB
     Dosage: 125 MG
  10. SENOKOT [Concomitant]
     Active Substance: SENNOSIDES
     Dosage: AS NEEDED

REACTIONS (6)
  - Cardiac disorder [Unknown]
  - Neutrophil count decreased [Unknown]
  - Product dose omission issue [Unknown]
  - Chest discomfort [Recovering/Resolving]
  - Pulmonary embolism [Unknown]
  - Dyspnoea [Recovering/Resolving]

NARRATIVE: CASE EVENT DATE: 20200715
